FAERS Safety Report 26194842 (Version 1)
Quarter: 2025Q4

REPORT INFORMATION
  Report Type: Spontaneous
  Country: EU (occurrence: EU)
  Receive Date: 20251224
  Receipt Date: 20251224
  Transmission Date: 20260117
  Serious: Yes (Other)
  Sender: PFIZER
  Company Number: EU-MLMSERVICE-20251204-PI727570-00202-9

PATIENT
  Age: 45 Year
  Sex: Male

DRUGS (13)
  1. LINEZOLID [Suspect]
     Active Substance: LINEZOLID
     Indication: Mycobacterium abscessus infection
     Dosage: 600 MG, 2X/DAY
     Route: 048
     Dates: start: 202002, end: 202002
  2. TEDIZOLID [Suspect]
     Active Substance: TEDIZOLID
     Indication: Mycobacterium abscessus infection
     Dosage: 200 MG, DAILY
     Route: 048
     Dates: start: 202006, end: 202102
  3. CIPROFLOXACIN [Suspect]
     Active Substance: CIPROFLOXACIN
     Indication: Mycobacterium abscessus infection
     Dosage: 500 MG, 2X/DAY
     Route: 048
     Dates: start: 202004, end: 202107
  4. CLOFAZIMINE [Suspect]
     Active Substance: CLOFAZIMINE
     Indication: Mycobacterium abscessus infection
     Dosage: 100 MG, DAILY
     Route: 048
     Dates: start: 202002, end: 202109
  5. AMIKACIN [Concomitant]
     Active Substance: AMIKACIN
     Indication: Mycobacterium abscessus infection
     Dosage: 500 MG, 2X/DAY
     Route: 055
     Dates: start: 202002, end: 202111
  6. TACROLIMUS [Concomitant]
     Active Substance: TACROLIMUS
     Indication: Immunosuppressant drug therapy
     Dosage: UNK
     Dates: start: 201901, end: 202206
  7. PREDNISONE [Concomitant]
     Active Substance: PREDNISONE
     Indication: Immunosuppressant drug therapy
     Dosage: 40 MG, 1X/DAY(GRADUALLY TAPERED TO 4 MG EVERY 24 HOURS)
     Dates: start: 201901
  8. PREDNISONE [Concomitant]
     Active Substance: PREDNISONE
     Dosage: 4 MG, 1X/DAY
  9. PREDNISONE [Concomitant]
     Active Substance: PREDNISONE
     Dosage: 15 MG, 1X/DAY
     Dates: end: 202206
  10. SIROLIMUS [Concomitant]
     Active Substance: SIROLIMUS
     Indication: Immunosuppressant drug therapy
     Dosage: UNK
     Dates: start: 201905, end: 202004
  11. UNSPECIFIED INGREDIENT [Concomitant]
     Active Substance: UNSPECIFIED INGREDIENT
     Dosage: UNK, 2X/DAY
     Route: 042
     Dates: start: 202011, end: 202110
  12. AZITHROMYCIN [Concomitant]
     Active Substance: AZITHROMYCIN
     Indication: Mycobacterium abscessus infection
     Dosage: 250 MG, EVERY 48 HRS
     Route: 048
     Dates: start: 201901, end: 201911
  13. AZITHROMYCIN [Concomitant]
     Active Substance: AZITHROMYCIN
     Dosage: 500 MG, EVERY 48 HRS
     Route: 048
     Dates: start: 201912, end: 202206

REACTIONS (4)
  - Acute kidney injury [Unknown]
  - Diarrhoea [Unknown]
  - Dyspepsia [Unknown]
  - Off label use [Unknown]

NARRATIVE: CASE EVENT DATE: 20200201
